FAERS Safety Report 22362299 (Version 1)
Quarter: 2023Q2

REPORT INFORMATION
  Report Type: Spontaneous
  Country: CN (occurrence: CN)
  Receive Date: 20230524
  Receipt Date: 20230524
  Transmission Date: 20230721
  Serious: Yes (Life-Threatening, Hospitalization, Other)
  Sender: FDA-Public Use
  Company Number: CN-PFIZER INC-PV202300090502

PATIENT
  Age: 48 Year
  Sex: Male

DRUGS (6)
  1. METHOTREXATE SODIUM [Suspect]
     Active Substance: METHOTREXATE SODIUM
     Indication: Diffuse large B-cell lymphoma
     Dosage: 0.8 G, 1X/DAY
     Route: 041
     Dates: start: 20230510, end: 20230510
  2. METHOTREXATE SODIUM [Suspect]
     Active Substance: METHOTREXATE SODIUM
     Dosage: 5 G, 1X/DAY
     Route: 041
     Dates: start: 20230510, end: 20230510
  3. CYTARABINE [Suspect]
     Active Substance: CYTARABINE
     Indication: Diffuse large B-cell lymphoma
     Dosage: 3000 MG, 2X/DAY
     Route: 041
     Dates: start: 20230510, end: 20230512
  4. RITUXIMAB [Suspect]
     Active Substance: RITUXIMAB
     Indication: Diffuse large B-cell lymphoma
     Dosage: 0.1 G, 1X/DAY
     Route: 041
     Dates: start: 20230508, end: 20230508
  5. RITUXIMAB [Suspect]
     Active Substance: RITUXIMAB
     Dosage: 0.5 G, 1X/DAY
     Route: 041
     Dates: start: 20230508, end: 20230508
  6. ZANUBRUTINIB [Suspect]
     Active Substance: ZANUBRUTINIB
     Indication: Diffuse large B-cell lymphoma
     Dosage: 160 MG, 2X/DAY
     Route: 048
     Dates: start: 20230508, end: 20230517

REACTIONS (2)
  - Myelosuppression [Recovering/Resolving]
  - Off label use [Unknown]

NARRATIVE: CASE EVENT DATE: 20230508
